FAERS Safety Report 14008894 (Version 1)
Quarter: 2017Q3

REPORT INFORMATION
  Report Type: Spontaneous
  Country: US (occurrence: US)
  Receive Date: 20170925
  Receipt Date: 20170925
  Transmission Date: 20171128
  Serious: No
  Sender: FDA-Public Use
  Company Number: US-B.I. PHARMACEUTICALS,INC./RIDGEFIELD-2017-BI-051072

PATIENT
  Sex: Male

DRUGS (6)
  1. OMEPRAZOLE. [Concomitant]
     Active Substance: OMEPRAZOLE
     Indication: PRODUCT USED FOR UNKNOWN INDICATION
     Dosage: TWICE DAILY;  FORM STRENGTH: 40MG; FORMULATION: TABLET
     Route: 048
  2. TOUJEO [Concomitant]
     Active Substance: INSULIN GLARGINE
     Indication: PRODUCT USED FOR UNKNOWN INDICATION
     Dosage: ONCE DAILY;  FORM STRENGTH: 80U; FORMULATION: SUBCUTANEOUS
     Route: 058
  3. JARDIANCE [Suspect]
     Active Substance: EMPAGLIFLOZIN
     Indication: PRODUCT USED FOR UNKNOWN INDICATION
     Dosage: ONCE DAILY; ACTION(S) TAKEN WITH PRODUCT: DOSE NOT CHANGED
     Route: 048
  4. METFORMIN [Concomitant]
     Active Substance: METFORMIN HYDROCHLORIDE
     Indication: PRODUCT USED FOR UNKNOWN INDICATION
     Dosage: TWO TABLETS TWICE DAILY;  FORM STRENGTH: 500MG; FORMULATION: TABLET
     Route: 048
  5. ATORVASTATIN [Concomitant]
     Active Substance: ATORVASTATIN
     Indication: PRODUCT USED FOR UNKNOWN INDICATION
     Dosage: TWICE DAILY;  FORM STRENGTH: 40MG; FORMULATION: TABLET
     Route: 048
  6. ALPRAZOLAM. [Concomitant]
     Active Substance: ALPRAZOLAM
     Indication: PRODUCT USED FOR UNKNOWN INDICATION
     Dosage: THREE TIMES DAILY;  FORM STRENGTH: 0.5MG; FORMULATION: TABLET
     Route: 048

REACTIONS (1)
  - Blood glucose increased [Not Recovered/Not Resolved]
